FAERS Safety Report 4408587-X (Version None)
Quarter: 2004Q3

REPORT INFORMATION
  Report Type: 
  Country: None (occurrence: None)
  Receive Date: 20040722
  Receipt Date: 20040709
  Transmission Date: 20050211
  Serious: Yes (Hospitalization)
  Sender: FDA-Public Use
  Company Number: US-JNJFOC-20040702663

PATIENT
  Age: 70 Year
  Sex: Female

DRUGS (19)
  1. INFLIXIMAB (INFLIXIMAB, RECOMBINANT) LYOPHILIZED POWDER [Suspect]
     Indication: RHEUMATOID ARTHRITIS
     Dosage: 300 MG, 1 IN 8 WEEK, INTRAVENOUS
     Route: 042
     Dates: start: 20001214
  2. ASPIRIN [Concomitant]
  3. ATENOLOL [Concomitant]
  4. HYDROCHLOROTHIAZIDE [Concomitant]
  5. IRON (IRON) [Concomitant]
  6. METHOTREXATE [Concomitant]
  7. OSCAL (CALCIUM CARBONATE) [Concomitant]
  8. PREDNISONE [Concomitant]
  9. PREMARIN [Concomitant]
  10. PRILOSEC [Concomitant]
  11. TIAZAC (DILTIAZEM HYDROCHLOROTHIAZIDE) [Concomitant]
  12. LIPITOR [Concomitant]
  13. NEXIUM [Concomitant]
  14. VITAMIN B12 [Concomitant]
  15. VITAMIN B (VITAMIN B) [Concomitant]
  16. VITAMIN C (ASCORBIC ACID) [Concomitant]
  17. VITAMIN E [Concomitant]
  18. WYGESIC (APOREX) [Concomitant]
  19. TYLENOL PM (TYLENOL PM) [Concomitant]

REACTIONS (11)
  - CAROTID ARTERY STENOSIS [None]
  - CHEST PAIN [None]
  - CHEST X-RAY ABNORMAL [None]
  - MITRAL VALVE INCOMPETENCE [None]
  - PAIN [None]
  - PALPITATIONS [None]
  - PYREXIA [None]
  - SUPRAVENTRICULAR EXTRASYSTOLES [None]
  - SYNCOPE [None]
  - TRICUSPID VALVE INCOMPETENCE [None]
  - VENTRICULAR HYPERTROPHY [None]
